FAERS Safety Report 7948253-7 (Version None)
Quarter: 2011Q4

REPORT INFORMATION
  Report Type: 
  Country: None (occurrence: None)
  Receive Date: 20111130
  Receipt Date: 20111126
  Transmission Date: 20120403
  Serious: No
  Sender: FDA-Public Use
  Company Number: US-PFIZER INC-2011289414

PATIENT
  Age: 68 Year
  Sex: Male
  Weight: 95.238 kg

DRUGS (7)
  1. LYRICA [Suspect]
     Indication: NERVE INJURY
  2. GABAPENTIN [Suspect]
     Indication: HERPES ZOSTER
  3. LYRICA [Suspect]
     Indication: HERPES ZOSTER
  4. GABAPENTIN [Suspect]
     Indication: NERVE INJURY
  5. SPIRIVA [Concomitant]
     Dosage: UNK
  6. LYRICA [Suspect]
     Indication: PAIN
     Dosage: UNK
  7. GABAPENTIN [Suspect]
     Indication: PAIN
     Dosage: UNK

REACTIONS (2)
  - MYALGIA [None]
  - DRUG INEFFECTIVE [None]
